FAERS Safety Report 4441377-0 (Version None)
Quarter: 2004Q3

REPORT INFORMATION
  Report Type: 
  Country: None (occurrence: None)
  Receive Date: 20040728
  Receipt Date: 20040428
  Transmission Date: 20050211
  Serious: No
  Sender: FDA-Public Use
  Company Number: USA040466193

PATIENT
  Age: 38 Year
  Sex: Male
  Weight: 111 kg

DRUGS (1)
  1. STRATTERA [Suspect]
     Indication: AMNESIA
     Dosage: 60 MG DAY
     Dates: start: 20040301

REACTIONS (3)
  - DIFFICULTY IN WALKING [None]
  - DYSPNOEA [None]
  - TESTICULAR PAIN [None]
